FAERS Safety Report 8472093-6 (Version None)
Quarter: 2012Q2

REPORT INFORMATION
  Report Type: 
  Country: None (occurrence: None)
  Receive Date: 20120323
  Receipt Date: 20111007
  Transmission Date: 20120825
  Serious: Yes (Death)
  Sender: FDA-Public Use
  Company Number: 163-21880-11090216

PATIENT
  Age: 60 Year
  Sex: Male

DRUGS (12)
  1. MIRALAX (MACROGOL)(POWDER [Concomitant]
  2. ACYCLOVIR [Concomitant]
  3. FUROSEMIDE [Concomitant]
  4. PLAVIX [Concomitant]
  5. ASPIRIN [Concomitant]
  6. REVLIMID [Suspect]
     Indication: MULTIPLE MYELOMA
     Dosage: 25 MG,1 IN 1 D, PO,  25 MG, PO
     Route: 048
     Dates: start: 20110314, end: 20110601
  7. REVLIMID [Suspect]
     Indication: MULTIPLE MYELOMA
     Dosage: 25 MG,1 IN 1 D, PO,  25 MG, PO
     Route: 048
     Dates: start: 20110831, end: 20110831
  8. FISH OIL (FISH OIL)(CAPSULES) [Concomitant]
  9. GLIPIZIDE [Concomitant]
  10. DEXAMETHASONE [Concomitant]
  11. NITROSTAT (GLYCERYL TRINITRATE)(TABLETS) [Concomitant]
  12. ACETAMINOPHEN (PARACETAMOL)(TABLETS) [Concomitant]

REACTIONS (1)
  - SUDDEN DEATH [None]
